FAERS Safety Report 9330571 (Version 2)
Quarter: 2013Q2

REPORT INFORMATION
  Report Type: Spontaneous
  Country: US (occurrence: US)
  Receive Date: 20130605
  Receipt Date: 20130617
  Transmission Date: 20140414
  Serious: Yes (Other)
  Sender: FDA-Public Use
  Company Number: PHEH2013US012126

PATIENT
  Sex: Female

DRUGS (8)
  1. MYFORTIC [Suspect]
     Dosage: 180 MG, BID
     Dates: start: 200710, end: 201303
  2. PROGRAF [Concomitant]
     Dosage: UNK UKN, UNK
  3. PREDNISONE [Concomitant]
     Dosage: UNK UKN, UNK
  4. NORVASC [Concomitant]
     Dosage: UNK UKN, UNK
  5. ATENOLOL [Concomitant]
     Dosage: UNK UKN, UNK
  6. HYDRALAZINE [Concomitant]
     Dosage: UNK UKN, UNK
  7. SODIUM BICARBONATE [Concomitant]
     Dosage: UNK UKN, UNK
  8. LEVOTHYROXINE [Concomitant]
     Dosage: UNK UKN, UNK

REACTIONS (1)
  - Renal failure [Unknown]
